FAERS Safety Report 4289788-0 (Version None)
Quarter: 2004Q1

REPORT INFORMATION
  Report Type: 
  Country: None (occurrence: None)
  Receive Date: 20040210
  Receipt Date: 20040127
  Transmission Date: 20041129
  Serious: Yes (Hospitalization)
  Sender: FDA-Public Use
  Company Number: FR-GLAXOSMITHKLINE-B0321306A

PATIENT
  Age: 43 Year
  Sex: Male

DRUGS (4)
  1. EPIVIR [Suspect]
     Indication: HIV INFECTION
     Dosage: 2UNIT PER DAY
     Route: 048
     Dates: start: 20020815
  2. VIRACEPT [Suspect]
     Indication: HIV INFECTION
     Dosage: 5UNIT TWICE PER DAY
     Route: 048
     Dates: start: 20020815
  3. ZERIT [Suspect]
     Indication: HIV INFECTION
     Dosage: 1UNIT TWICE PER DAY
     Route: 048
     Dates: start: 20020815
  4. BACTRIM [Suspect]
     Route: 048

REACTIONS (2)
  - CARDIAC FAILURE [None]
  - VIRAL INFECTION [None]
